FAERS Safety Report 19793476 (Version 1)
Quarter: 2021Q3

REPORT INFORMATION
  Report Type: Spontaneous
  Country: JP (occurrence: JP)
  Receive Date: 20210906
  Receipt Date: 20210906
  Transmission Date: 20211014
  Serious: Yes (Death, Other)
  Sender: FDA-Public Use
  Company Number: JP-PFIZER INC-202101121375

PATIENT
  Age: 67 Year
  Sex: Male

DRUGS (3)
  1. COMIRNATY [Suspect]
     Active Substance: TOZINAMERAN
     Indication: COVID-19 IMMUNISATION
     Dosage: DOSE 1, SINGLE
     Dates: start: 20210805, end: 20210805
  2. TS?1 [Suspect]
     Active Substance: GIMERACIL\OTERACIL\TEGAFUR
     Indication: NEOPLASM MALIGNANT
     Dosage: UNK
     Dates: start: 202012, end: 202107
  3. OXALIPLATIN. [Suspect]
     Active Substance: OXALIPLATIN
     Indication: NEOPLASM MALIGNANT
     Dosage: UNK
     Dates: start: 202012, end: 202107

REACTIONS (9)
  - Blood pressure decreased [Fatal]
  - Pyrexia [Unknown]
  - Oxygen saturation decreased [Unknown]
  - Pulmonary congestion [Fatal]
  - Decreased appetite [Unknown]
  - Troponin T increased [Unknown]
  - Pneumonia [Unknown]
  - Cerebral infarction [Unknown]
  - Pulmonary alveolar haemorrhage [Fatal]

NARRATIVE: CASE EVENT DATE: 202107
